FAERS Safety Report 9556285 (Version 1)
Quarter: 2013Q3

REPORT INFORMATION
  Report Type: Spontaneous
  Country: US (occurrence: US)
  Receive Date: 20130926
  Receipt Date: 20130926
  Transmission Date: 20140515
  Serious: Yes (Death)
  Sender: FDA-Public Use
  Company Number: US-ASTRAZENECA-2013SE71090

PATIENT
  Age: 87 Year
  Sex: Male

DRUGS (2)
  1. SYMBICORT [Suspect]
     Indication: CHRONIC OBSTRUCTIVE PULMONARY DISEASE
     Dosage: 80/4.5, UNKNOWN FREQUENCY
     Route: 055
  2. ALBUTEROL [Concomitant]

REACTIONS (4)
  - Death [Fatal]
  - Chronic obstructive pulmonary disease [Fatal]
  - Mobility decreased [Unknown]
  - Cachexia [Unknown]
